FAERS Safety Report 4895440-0 (Version None)
Quarter: 2006Q1

REPORT INFORMATION
  Report Type: 
  Country: None (occurrence: None)
  Receive Date: 20060130
  Receipt Date: 20050815
  Transmission Date: 20060701
  Serious: No
  Sender: FDA-Public Use
  Company Number: US-GLAXOSMITHKLINE-A0570252A

PATIENT
  Age: 28 Year
  Sex: Male

DRUGS (5)
  1. EPIVIR [Suspect]
     Indication: HIV INFECTION
     Dosage: 25MG PER DAY
     Route: 048
     Dates: start: 20050807
  2. ZIAGEN [Suspect]
     Indication: HIV INFECTION
     Route: 065
  3. ACCUPRIL [Concomitant]
  4. PROCARDIA [Concomitant]
  5. LABETALOL HCL [Concomitant]

REACTIONS (1)
  - WEIGHT INCREASED [None]
